APPROVED DRUG PRODUCT: UNITENSEN
Active Ingredient: CRYPTENAMINE ACETATES
Strength: 260CSR UNIT/ML
Dosage Form/Route: INJECTABLE;INJECTION
Application: N008814 | Product #001
Applicant: MEDPOINTE PHARMACEUTICALS MEDPOINTE HEALTHCARE INC
Approved: Approved Prior to Jan 1, 1982 | RLD: No | RS: No | Type: DISCN